FAERS Safety Report 5651903-1 (Version None)
Quarter: 2008Q1

REPORT INFORMATION
  Report Type: 
  Country: None (occurrence: None)
  Receive Date: 20080305
  Receipt Date: 20080229
  Transmission Date: 20080703
  Serious: Yes (Other)
  Sender: FDA-Public Use
  Company Number: US-MERCK-0803USA00145

PATIENT
  Age: 77 Year
  Sex: Male
  Weight: 62 kg

DRUGS (1)
  1. ZETIA [Suspect]
     Route: 048
     Dates: start: 20060701

REACTIONS (2)
  - EMPHYSEMA [None]
  - WEIGHT DECREASED [None]
